FAERS Safety Report 14820899 (Version 1)
Quarter: 2018Q2

REPORT INFORMATION
  Report Type: Spontaneous
  Country: US (occurrence: US)
  Receive Date: 20180403
  Receipt Date: 20180403
  Transmission Date: 20180711
  Serious: Yes (Other)
  Sender: FDA-Public Use
  Company Number: None

PATIENT
  Age: 38 Year
  Sex: Female
  Weight: 45 kg

DRUGS (8)
  1. DEPO-PROVERA [Suspect]
     Active Substance: MEDROXYPROGESTERONE ACETATE
     Indication: HAEMORRHAGE
     Dosage: IM; EVERY 3 MONTHS?
     Route: 030
     Dates: start: 20170403, end: 20170926
  2. MULTI VITAMIN [Concomitant]
     Active Substance: VITAMINS
  3. VITAMIN C [Concomitant]
     Active Substance: ASCORBIC ACID
  4. TYLENOL [Concomitant]
     Active Substance: ACETAMINOPHEN
  5. TEGRETOL [Concomitant]
     Active Substance: CARBAMAZEPINE
  6. LEVOTHYROXIN [Concomitant]
     Active Substance: LEVOTHYROXINE
  7. DEPO-PROVERA [Suspect]
     Active Substance: MEDROXYPROGESTERONE ACETATE
     Indication: DYSMENORRHOEA
     Dosage: IM; EVERY 3 MONTHS?
     Route: 030
     Dates: start: 20170403, end: 20170926
  8. VITAMIN D [Concomitant]
     Active Substance: CHOLECALCIFEROL

REACTIONS (1)
  - Blindness transient [None]

NARRATIVE: CASE EVENT DATE: 20170708
